FAERS Safety Report 25984026 (Version 2)
Quarter: 2025Q4

REPORT INFORMATION
  Report Type: Spontaneous
  Country: EU (occurrence: EU)
  Receive Date: 20251031
  Receipt Date: 20251127
  Transmission Date: 20260118
  Serious: Yes (Other)
  Sender: SANDOZ
  Company Number: EU-002147023-NVSC2025DE165151

PATIENT
  Sex: Female

DRUGS (3)
  1. ANASTROZOLE [Suspect]
     Active Substance: ANASTROZOLE
     Indication: Hormone receptor positive HER2 negative breast cancer
     Dosage: 1 MG, QD (TOTAL DAILY DOSE)
     Route: 048
     Dates: start: 20250922
  2. KISQALI [Suspect]
     Active Substance: RIBOCICLIB SUCCINATE
     Indication: Hormone receptor positive HER2 negative breast cancer
     Dosage: 400 MG, QD (TOTAL DAILY DOSE) (21 DAYS  DAILY INTAKE, 7 DAYS PAUSE)
     Route: 048
     Dates: start: 20250922, end: 20251012
  3. KISQALI [Suspect]
     Active Substance: RIBOCICLIB SUCCINATE
     Dosage: 400 MG, QD (TOTAL DAILY DOSE) (21 DAYS  DAILY INTAKE, 7 DAYS PAUSE)
     Route: 048
     Dates: start: 20251027

REACTIONS (2)
  - Leukopenia [Recovered/Resolved]
  - Diarrhoea [Not Recovered/Not Resolved]

NARRATIVE: CASE EVENT DATE: 20251007
